FAERS Safety Report 11226119 (Version 37)
Quarter: 2017Q1

REPORT INFORMATION
  Report Type: Spontaneous
  Country: US (occurrence: US)
  Receive Date: 20150629
  Receipt Date: 20170310
  Transmission Date: 20170428
  Serious: Yes (Other)
  Sender: FDA-Public Use
  Company Number: US-GLAXOSMITHKLINE-US2015GSK092950

PATIENT
  Age: 54 Year
  Sex: Female
  Weight: 83.45 kg

DRUGS (33)
  1. FLOLAN [Suspect]
     Active Substance: EPOPROSTENOL SODIUM
     Dosage: 64 DF, CO
     Route: 042
  2. FLOLAN [Suspect]
     Active Substance: EPOPROSTENOL SODIUM
     Dosage: UNK, CO
     Dates: start: 20060725
  3. ADCIRCA [Suspect]
     Active Substance: TADALAFIL
     Indication: PRODUCT USED FOR UNKNOWN INDICATION
     Dosage: 40 MG, QD
     Dates: start: 20160801
  4. FLOLAN [Suspect]
     Active Substance: EPOPROSTENOL SODIUM
     Dosage: 49.7 DF, CO
  5. FLOLAN [Suspect]
     Active Substance: EPOPROSTENOL SODIUM
     Dosage: 56.9 DF, CO
     Dates: start: 20060725
  6. FLOLAN [Suspect]
     Active Substance: EPOPROSTENOL SODIUM
     Dosage: 56.9 DF, CO
     Route: 042
  7. FLOLAN [Suspect]
     Active Substance: EPOPROSTENOL SODIUM
     Indication: PULMONARY ARTERIAL HYPERTENSION
     Dosage: UNK, CO
     Dates: start: 20060725
  8. FLOLAN [Suspect]
     Active Substance: EPOPROSTENOL SODIUM
     Dosage: UNK, CO
     Route: 042
  9. LASIX [Suspect]
     Active Substance: FUROSEMIDE
     Dosage: 20 MG, QD
  10. FLOLAN [Suspect]
     Active Substance: EPOPROSTENOL SODIUM
     Dosage: 62.5 DF, CO
  11. FLOLAN [Suspect]
     Active Substance: EPOPROSTENOL SODIUM
     Dosage: UNK
  12. FLOLAN [Suspect]
     Active Substance: EPOPROSTENOL SODIUM
     Dosage: 52.1 DF, CO
  13. FLOLAN [Suspect]
     Active Substance: EPOPROSTENOL SODIUM
     Dosage: 56.9 DF, CO
     Route: 042
     Dates: start: 20060725
  14. FLOLAN [Suspect]
     Active Substance: EPOPROSTENOL SODIUM
     Dosage: UNK, CO
  15. ADCIRCA [Suspect]
     Active Substance: TADALAFIL
     Dosage: 30 MG, QD
     Dates: end: 2016
  16. FLOLAN [Suspect]
     Active Substance: EPOPROSTENOL SODIUM
     Dosage: 64 DF, CO
  17. FLOLAN [Suspect]
     Active Substance: EPOPROSTENOL SODIUM
     Dosage: UNK, CO
     Dates: start: 20060725
  18. FLOLAN [Suspect]
     Active Substance: EPOPROSTENOL SODIUM
     Dosage: 62.5 DF, CO
     Dates: start: 20160725
  19. LASIX [Suspect]
     Active Substance: FUROSEMIDE
     Indication: OEDEMA
     Dosage: UNK
  20. FLOLAN [Suspect]
     Active Substance: EPOPROSTENOL SODIUM
     Dosage: 52.7 DF, CO
  21. FLOLAN [Suspect]
     Active Substance: EPOPROSTENOL SODIUM
     Dosage: 22 DF, CO
     Dates: start: 20060725
  22. FLOLAN [Suspect]
     Active Substance: EPOPROSTENOL SODIUM
     Dosage: UNK
  23. FLOLAN [Suspect]
     Active Substance: EPOPROSTENOL SODIUM
     Dosage: 56.2 DF, CO
  24. FLOLAN [Suspect]
     Active Substance: EPOPROSTENOL SODIUM
     Dosage: 56.2 DF, CO
     Route: 042
     Dates: start: 20060725
  25. FLOLAN [Suspect]
     Active Substance: EPOPROSTENOL SODIUM
     Dosage: 56.2 DF, CO
  26. FLOLAN [Suspect]
     Active Substance: EPOPROSTENOL SODIUM
     Dosage: 56.9 DF, CO
     Route: 042
  27. FLOLAN [Suspect]
     Active Substance: EPOPROSTENOL SODIUM
     Dosage: 62.5 DF, CO
  28. FLOLAN [Suspect]
     Active Substance: EPOPROSTENOL SODIUM
     Dosage: 62.5 DF, CO
     Dates: start: 20060725
  29. FLOLAN [Suspect]
     Active Substance: EPOPROSTENOL SODIUM
     Indication: PULMONARY ARTERIAL HYPERTENSION
     Dosage: 49.7 DF, CO
     Route: 042
     Dates: start: 20060725
  30. FLOLAN [Suspect]
     Active Substance: EPOPROSTENOL SODIUM
     Dosage: UNK, CO
  31. FLOLAN [Suspect]
     Active Substance: EPOPROSTENOL SODIUM
     Dosage: UNK
  32. ALBUTEROL. [Suspect]
     Active Substance: ALBUTEROL
     Indication: PRODUCT USED FOR UNKNOWN INDICATION
     Dosage: UNK, U
     Route: 065
  33. LETAIRIS [Suspect]
     Active Substance: AMBRISENTAN
     Indication: PRODUCT USED FOR UNKNOWN INDICATION
     Dosage: UNK
     Dates: start: 20160822

REACTIONS (63)
  - Device dislocation [Unknown]
  - Deafness [Unknown]
  - Heart rate increased [Recovering/Resolving]
  - Carbon dioxide abnormal [Unknown]
  - Gastrooesophageal reflux disease [Unknown]
  - Visual impairment [Unknown]
  - Device failure [Unknown]
  - Condition aggravated [Not Recovered/Not Resolved]
  - Pain [Unknown]
  - Abnormal behaviour [Unknown]
  - Pulmonary arterial pressure increased [Unknown]
  - Dyspnoea [Not Recovered/Not Resolved]
  - Headache [Unknown]
  - Anxiety [Unknown]
  - Ejection fraction abnormal [Unknown]
  - Muscle spasms [Recovering/Resolving]
  - Sinus headache [Unknown]
  - Asthenia [Unknown]
  - Drug ineffective [Unknown]
  - Hypoaesthesia [Not Recovered/Not Resolved]
  - Haemorrhage [Unknown]
  - Diarrhoea [Recovering/Resolving]
  - Blood pressure abnormal [Unknown]
  - Fall [Recovered/Resolved]
  - Contusion [Unknown]
  - Bronchitis [Unknown]
  - Pain in extremity [Unknown]
  - Hypoacusis [Unknown]
  - Emergency care [Unknown]
  - Neuropathy peripheral [Recovering/Resolving]
  - Joint crepitation [Not Recovered/Not Resolved]
  - Weight decreased [Unknown]
  - Hypotension [Recovering/Resolving]
  - Echocardiogram abnormal [Unknown]
  - Oedema [Recovered/Resolved]
  - Adrenal disorder [Unknown]
  - Skin discolouration [Unknown]
  - Feeling abnormal [Unknown]
  - Oxygen saturation decreased [Unknown]
  - Blood magnesium decreased [Not Recovered/Not Resolved]
  - Laceration [Unknown]
  - Back pain [Unknown]
  - Migraine [Unknown]
  - Amnesia [Unknown]
  - Confusional state [Unknown]
  - Vision blurred [Unknown]
  - Fatigue [Recovered/Resolved]
  - Heart rate decreased [Unknown]
  - Angina pectoris [Unknown]
  - Depression [Unknown]
  - Pain in jaw [Unknown]
  - Nausea [Unknown]
  - Dental prosthesis placement [Unknown]
  - Catheter site haemorrhage [Unknown]
  - Haemoptysis [Unknown]
  - Mental status changes [Unknown]
  - Alopecia [Unknown]
  - Blood sodium decreased [Not Recovered/Not Resolved]
  - Complication associated with device [Unknown]
  - Stress [Unknown]
  - Vomiting [Unknown]
  - Incorrect dose administered [Unknown]
  - Thyroid mass [Not Recovered/Not Resolved]

NARRATIVE: CASE EVENT DATE: 201610
